FAERS Safety Report 12240892 (Version 1)
Quarter: 2016Q2

REPORT INFORMATION
  Report Type: Spontaneous
  Country: US (occurrence: None)
  Receive Date: 20160405
  Receipt Date: 20160405
  Transmission Date: 20160815
  Serious: Yes (Hospitalization, Other)
  Sender: FDA-Public Use
  Company Number: None

PATIENT
  Age: 47 Year
  Sex: Male
  Weight: 73 kg

DRUGS (1)
  1. FMT CAPSULE G3 [Suspect]
     Active Substance: FECAL MICROBIOTA
     Indication: CLOSTRIDIUM DIFFICILE COLITIS
     Route: 048
     Dates: start: 20160324, end: 20160324

REACTIONS (6)
  - Necrotising fasciitis [None]
  - Clostridium difficile colitis [None]
  - Urine output decreased [None]
  - Disease recurrence [None]
  - Large intestine perforation [None]
  - Muscle abscess [None]

NARRATIVE: CASE EVENT DATE: 20160401
